FAERS Safety Report 24562244 (Version 1)
Quarter: 2024Q4

REPORT INFORMATION
  Report Type: Spontaneous
  Country: US (occurrence: US)
  Receive Date: 20241029
  Receipt Date: 20241029
  Transmission Date: 20250115
  Serious: No
  Sender: MYLAN
  Company Number: US-MYLANLABS-2024M1093472

PATIENT
  Sex: Female
  Weight: 51.26 kg

DRUGS (1)
  1. TYRVAYA [Suspect]
     Active Substance: VARENICLINE TARTRATE
     Indication: Dry eye
     Dosage: UNK
     Route: 045
     Dates: start: 202410

REACTIONS (3)
  - Tremor [Unknown]
  - Eye irritation [Unknown]
  - Accidental exposure to product [Unknown]
